FAERS Safety Report 11678852 (Version 1)
Quarter: 2015Q4

REPORT INFORMATION
  Report Type: Spontaneous
  Country: US (occurrence: US)
  Receive Date: 20151027
  Receipt Date: 20151027
  Transmission Date: 20160304
  Serious: No
  Sender: FDA-Public Use
  Company Number: US-ELI_LILLY_AND_COMPANY-US201009001322

PATIENT
  Sex: Female

DRUGS (5)
  1. FORTEO [Suspect]
     Active Substance: TERIPARATIDE
     Dosage: 20 UG, DAILY (1/D)
  2. FORTEO [Suspect]
     Active Substance: TERIPARATIDE
     Dosage: 20 UG, DAILY (1/D)
  3. FORTEO [Suspect]
     Active Substance: TERIPARATIDE
     Indication: OSTEOPOROSIS
     Dosage: 20 UG, DAILY (1/D)
  4. OXYCODONE [Concomitant]
     Active Substance: OXYCODONE
     Indication: PAIN
  5. OXYCONTIN [Concomitant]
     Active Substance: OXYCODONE HYDROCHLORIDE
     Indication: PAIN

REACTIONS (16)
  - Crying [Unknown]
  - Fear [Unknown]
  - Gastrointestinal disorder [Unknown]
  - Eye movement disorder [Unknown]
  - Delusional perception [Unknown]
  - Injection site pain [Unknown]
  - Injection site pain [Recovered/Resolved]
  - Dizziness [Unknown]
  - Headache [Unknown]
  - Ageusia [Not Recovered/Not Resolved]
  - Pain [Unknown]
  - Medication error [Unknown]
  - Diarrhoea [Unknown]
  - Hallucination [Unknown]
  - Persecutory delusion [Unknown]
  - Middle insomnia [Unknown]
